FAERS Safety Report 14221197 (Version 1)
Quarter: 2017Q4

REPORT INFORMATION
  Report Type: Spontaneous
  Country: US (occurrence: US)
  Receive Date: 20171124
  Receipt Date: 20171124
  Transmission Date: 20180321
  Serious: No
  Sender: FDA-Public Use
  Company Number: US-PFIZER INC-2017503662

PATIENT
  Age: 65 Year
  Sex: Female
  Weight: 134 kg

DRUGS (4)
  1. ATROPINE SULFATE/DIPHENOXYLATE HYDROCHLORIDE [Suspect]
     Active Substance: ATROPINE SULFATE\DIPHENOXYLATE HYDROCHLORIDE
     Indication: DIARRHOEA
     Dosage: I TAKE TWO AS I NEED THEM THREE TIMES A DAY, [ATROPINE SULFATE 0.025MG]/[DIPHENOXYLATE HCL 2.5MG]
  2. DIPHENOXYLATE HYDROCHLORIDE AND ATROPINE SULFATE [Suspect]
     Active Substance: ATROPINE SULFATE\DIPHENOXYLATE HYDROCHLORIDE
     Indication: DIARRHOEA
  3. RITUXAN [Concomitant]
     Active Substance: RITUXIMAB
     Dosage: UNK, MONTHLY
  4. RITUXAN [Concomitant]
     Active Substance: RITUXIMAB
     Indication: NEOPLASM MALIGNANT
     Dosage: UNK, EVERY 3 MONTHS

REACTIONS (3)
  - Drug effect incomplete [Unknown]
  - Fatigue [Unknown]
  - Product use issue [Unknown]
